FAERS Safety Report 21864399 (Version 1)
Quarter: 2023Q1

REPORT INFORMATION
  Report Type: Other
  Country: CA (occurrence: None)
  Receive Date: 20230116
  Receipt Date: 20230116
  Transmission Date: 20230418
  Serious: No
  Sender: FDA-Public Use
  Company Number: CA-ROCHE-3139749

PATIENT
  Age: 32 Year
  Sex: Female

DRUGS (3)
  1. OCREVUS [Suspect]
     Active Substance: OCRELIZUMAB
     Indication: Relapsing-remitting multiple sclerosis
     Dosage: AT DAY 0 AND 14?CONCENTRATE FOR INTRAVENOUS INFUSION
     Route: 042
     Dates: start: 20200117
  2. OCREVUS [Suspect]
     Active Substance: OCRELIZUMAB
     Dosage: MORE DOSAGE INFORMATION IS 300 MG AT DAY 0 AND 14, THEN 600 MG EVERY 6 MONTH
     Route: 042
     Dates: start: 20200117
  3. NITROFURANTOIN [Concomitant]
     Active Substance: NITROFURANTOIN

REACTIONS (7)
  - Sinusitis [Recovered/Resolved]
  - Ear infection [Recovered/Resolved]
  - Urinary tract infection [Unknown]
  - Back pain [Recovered/Resolved]
  - Cognitive disorder [Recovered/Resolved]
  - Vertigo [Recovered/Resolved]
  - COVID-19 [Recovered/Resolved]

NARRATIVE: CASE EVENT DATE: 20220202
